FAERS Safety Report 10460531 (Version 10)
Quarter: 2015Q2

REPORT INFORMATION
  Report Type: Report from Study
  Country: CA (occurrence: CA)
  Receive Date: 20140918
  Receipt Date: 20150623
  Transmission Date: 20150821
  Serious: Yes (Hospitalization, Other)
  Sender: FDA-Public Use
  Company Number: CA-ROCHE-1409583

PATIENT
  Age: 68 Year
  Sex: Female

DRUGS (10)
  1. ACTEMRA [Suspect]
     Active Substance: TOCILIZUMAB
     Indication: RHEUMATOID ARTHRITIS
     Route: 042
     Dates: start: 20140430
  2. METHOTREXATE [Concomitant]
     Active Substance: METHOTREXATE
  3. VERAPAMIL [Concomitant]
     Active Substance: VERAPAMIL HYDROCHLORIDE
  4. PLAQUENIL [Concomitant]
     Active Substance: HYDROXYCHLOROQUINE SULFATE
  5. FOLIC ACID. [Concomitant]
     Active Substance: FOLIC ACID
  6. NEXIUM [Concomitant]
     Active Substance: ESOMEPRAZOLE MAGNESIUM
  7. OLMETEC [Concomitant]
     Active Substance: OLMESARTAN MEDOXOMIL
  8. SYNTHROID [Concomitant]
     Active Substance: LEVOTHYROXINE SODIUM
  9. ASA [Concomitant]
     Active Substance: ASPIRIN
  10. TRAZAMINE [Concomitant]
     Active Substance: CHOLINE\TRAZODONE HYDROCHLORIDE

REACTIONS (12)
  - Chest discomfort [Recovered/Resolved]
  - Stress [Unknown]
  - Oedema [Unknown]
  - Aortic valve disease [Unknown]
  - Arthralgia [Recovering/Resolving]
  - Mouth ulceration [Unknown]
  - Hypertension [Unknown]
  - Infusion related reaction [Unknown]
  - Pain [Not Recovered/Not Resolved]
  - Amnesia [Recovered/Resolved]
  - Anxiety [Unknown]
  - Rash erythematous [Recovering/Resolving]

NARRATIVE: CASE EVENT DATE: 20140531
